FAERS Safety Report 10196264 (Version 1)
Quarter: 2014Q2

REPORT INFORMATION
  Report Type: Spontaneous
  Country: US (occurrence: US)
  Receive Date: 20140527
  Receipt Date: 20140527
  Transmission Date: 20141212
  Serious: Yes (Other)
  Sender: FDA-Public Use
  Company Number: US-AMGEN-USASP2014037697

PATIENT
  Age: 83 Year
  Sex: Female

DRUGS (2)
  1. SENSIPAR [Suspect]
     Indication: PARATHYROID DISORDER
     Route: 065
  2. VITAMIN D                          /00107901/ [Concomitant]
     Route: 065

REACTIONS (1)
  - Urinary tract infection [Unknown]
